FAERS Safety Report 11706105 (Version 1)
Quarter: 2015Q4

REPORT INFORMATION
  Report Type: Spontaneous
  Country: US (occurrence: US)
  Receive Date: 20151104
  Receipt Date: 20151104
  Transmission Date: 20160304
  Serious: No
  Sender: FDA-Public Use
  Company Number: US-ELI_LILLY_AND_COMPANY-US201107001975

PATIENT
  Sex: Female

DRUGS (3)
  1. FORTEO [Suspect]
     Active Substance: TERIPARATIDE
     Indication: OSTEOPOROSIS
     Dosage: 20 UG, QD
     Route: 058
     Dates: start: 201101
  2. NICODERM CQ [Concomitant]
     Active Substance: NICOTINE
  3. NICOTINE. [Concomitant]
     Active Substance: NICOTINE

REACTIONS (3)
  - Skin reaction [Unknown]
  - Erythema [Unknown]
  - Musculoskeletal disorder [Unknown]
